FAERS Safety Report 6870011-5 (Version None)
Quarter: 2010Q3

REPORT INFORMATION
  Report Type: 
  Country: None (occurrence: None)
  Receive Date: 20100722
  Receipt Date: 20100712
  Transmission Date: 20110219
  Serious: Yes (Death, Other)
  Sender: FDA-Public Use
  Company Number: JP-PFIZER INC-2010067757

PATIENT
  Age: 85 Year
  Sex: Male

DRUGS (4)
  1. ZYVOX [Suspect]
     Dosage: UNK
     Route: 041
     Dates: start: 20100521, end: 20100525
  2. MICAFUNGIN [Concomitant]
     Dosage: UNK
  3. VANCOMYCIN [Concomitant]
     Dosage: UNK
     Dates: start: 20100514
  4. PRODIF [Concomitant]
     Dosage: UNK

REACTIONS (2)
  - PLATELET COUNT DECREASED [None]
  - PNEUMONIA [None]
